FAERS Safety Report 6385846-5 (Version None)
Quarter: 2009Q4

REPORT INFORMATION
  Report Type: 
  Country: None (occurrence: None)
  Receive Date: 20091002
  Receipt Date: 20090916
  Transmission Date: 20100525
  Serious: Yes (Life-Threatening, Hospitalization)
  Sender: FDA-Public Use
  Company Number: JP-ROCHE-659255

PATIENT
  Sex: Male
  Weight: 163 kg

DRUGS (10)
  1. PEGASYS [Suspect]
     Indication: HEPATITIS C
     Route: 058
     Dates: start: 20090323, end: 20090512
  2. PEGASYS [Suspect]
     Route: 058
     Dates: start: 20090526, end: 20090526
  3. LOXONIN [Concomitant]
     Dosage: NOTE TAKEN AS NEEDED.
     Route: 048
     Dates: start: 20090323
  4. PURSENNID [Concomitant]
     Route: 048
     Dates: start: 20090328, end: 20090328
  5. AMLODIPINE [Concomitant]
     Route: 048
  6. ISODINE [Concomitant]
     Dosage: DRUG NAME:ISODINE GARGLE, FORM:GARGLE, ROUTE: OROPHARINGEAL.
     Route: 050
     Dates: start: 20090519
  7. CRAVIT [Concomitant]
     Route: 048
     Dates: start: 20090623, end: 20090627
  8. CRAVIT [Concomitant]
     Route: 048
     Dates: start: 20090825, end: 20090901
  9. FLOMOX [Concomitant]
     Route: 048
     Dates: start: 20090901, end: 20090903
  10. RENIVEZE [Concomitant]
     Route: 048

REACTIONS (2)
  - ACUTE LEUKAEMIA [None]
  - NEUTROPHIL COUNT DECREASED [None]
